FAERS Safety Report 13427797 (Version 1)
Quarter: 2017Q2

REPORT INFORMATION
  Report Type: Spontaneous
  Country: FR (occurrence: FR)
  Receive Date: 20170411
  Receipt Date: 20170411
  Transmission Date: 20170830
  Serious: Yes (Death)
  Sender: FDA-Public Use
  Company Number: FR-SA-2017SA063511

PATIENT
  Age: 45 Year
  Sex: Female

DRUGS (12)
  1. EPIRUBICINE [Suspect]
     Active Substance: EPIRUBICIN
     Indication: INFLAMMATORY CARCINOMA OF THE BREAST
     Route: 042
     Dates: start: 20050315, end: 20050315
  2. CYCLOPHOSPHAMIDE. [Suspect]
     Active Substance: CYCLOPHOSPHAMIDE
     Indication: INFLAMMATORY CARCINOMA OF THE BREAST
     Route: 042
     Dates: start: 20050201, end: 20050201
  3. FLUOROURACIL. [Suspect]
     Active Substance: FLUOROURACIL
     Indication: INFLAMMATORY CARCINOMA OF THE BREAST
     Route: 042
     Dates: start: 20051117, end: 20051117
  4. FLUOROURACIL. [Suspect]
     Active Substance: FLUOROURACIL
     Indication: INFLAMMATORY CARCINOMA OF THE BREAST
     Route: 042
     Dates: start: 20050905, end: 20050905
  5. EPIRUBICINE [Suspect]
     Active Substance: EPIRUBICIN
     Indication: INFLAMMATORY CARCINOMA OF THE BREAST
     Route: 042
     Dates: start: 20050201, end: 20050201
  6. CYCLOPHOSPHAMIDE. [Suspect]
     Active Substance: CYCLOPHOSPHAMIDE
     Indication: INFLAMMATORY CARCINOMA OF THE BREAST
     Route: 042
     Dates: start: 20050315, end: 20050315
  7. TRASTUZUMAB [Concomitant]
     Active Substance: TRASTUZUMAB
     Route: 042
     Dates: start: 20060503, end: 20060503
  8. METHOTREXATE. [Concomitant]
     Active Substance: METHOTREXATE
     Dates: start: 20070820, end: 20070820
  9. METHOTREXATE. [Concomitant]
     Active Substance: METHOTREXATE
     Dosage: ROUTE:-  INTRATHECAL
     Dates: start: 20051220, end: 20051220
  10. DOCETAXEL. [Suspect]
     Active Substance: DOCETAXEL
     Indication: INFLAMMATORY CARCINOMA OF THE BREAST
     Dosage: ROUTE:- INTRAVENOUS INFUSION
     Route: 042
     Dates: start: 20050905, end: 20050905
  11. DOCETAXEL. [Suspect]
     Active Substance: DOCETAXEL
     Indication: INFLAMMATORY CARCINOMA OF THE BREAST
     Route: 042
     Dates: start: 20051117, end: 20051117
  12. TRASTUZUMAB [Concomitant]
     Active Substance: TRASTUZUMAB
     Route: 042
     Dates: start: 20051220, end: 20051220

REACTIONS (1)
  - Refractory anaemia with an excess of blasts [Fatal]

NARRATIVE: CASE EVENT DATE: 20071201
